FAERS Safety Report 18327036 (Version 1)
Quarter: 2020Q3

REPORT INFORMATION
  Report Type: Report from Study
  Country: None (occurrence: US)
  Receive Date: 20200929
  Receipt Date: 20200929
  Transmission Date: 20201103
  Serious: Yes (Other)
  Sender: FDA-Public Use
  Company Number: US-ABBVIE-20K-163-3585428-00

PATIENT
  Sex: Female

DRUGS (2)
  1. HUMIRA [Suspect]
     Active Substance: ADALIMUMAB
     Route: 058
     Dates: start: 20200821
  2. HUMIRA [Suspect]
     Active Substance: ADALIMUMAB
     Indication: PSORIASIS
     Route: 058
     Dates: end: 2019

REACTIONS (9)
  - Psoriasis [Recovering/Resolving]
  - Emotional distress [Unknown]
  - Hyperhidrosis [Unknown]
  - Menopause [Unknown]
  - Chills [Unknown]
  - Breast cancer [Unknown]
  - Post procedural infection [Unknown]
  - Skin irritation [Recovered/Resolved]
  - Pain [Recovered/Resolved]
